FAERS Safety Report 8361335-3 (Version None)
Quarter: 2012Q2

REPORT INFORMATION
  Report Type: 
  Country: None (occurrence: None)
  Receive Date: 20120515
  Receipt Date: 20120501
  Transmission Date: 20120825
  Serious: Yes (Life-Threatening, Hospitalization, Other)
  Sender: FDA-Public Use
  Company Number: US-ROCHE-1065510

PATIENT
  Age: 64 Year
  Sex: Male

DRUGS (1)
  1. ACTIVASE [Suspect]
     Indication: PRODUCT USED FOR UNKNOWN INDICATION
     Dosage: 81-150 MG
     Route: 042

REACTIONS (10)
  - CEREBRAL INFARCTION [None]
  - BLOOD PRESSURE INCREASED [None]
  - OVERDOSE [None]
  - ILL-DEFINED DISORDER [None]
  - DYSPHONIA [None]
  - DRUG ADMINISTRATION ERROR [None]
  - HAEMORRHAGE INTRACRANIAL [None]
  - HAEMORRHAGE [None]
  - HEMIPLEGIA [None]
  - ARRHYTHMIA [None]
